FAERS Safety Report 9595033 (Version 2)
Quarter: 2013Q4

REPORT INFORMATION
  Report Type: Spontaneous
  Country: US (occurrence: US)
  Receive Date: 20131004
  Receipt Date: 20131004
  Transmission Date: 20140711
  Serious: No
  Sender: FDA-Public Use
  Company Number: US-PURDUE-USA-2012-0092715

PATIENT
  Age: 61 Year
  Sex: Female

DRUGS (8)
  1. BUTRANS [Suspect]
     Indication: NECK PAIN
     Dosage: 20 MCG/HR, UNK
     Route: 062
     Dates: start: 201205, end: 201210
  2. BUTRANS [Suspect]
     Dosage: 20 MCG/HR, UNK
     Route: 062
     Dates: start: 201210, end: 201211
  3. BUTRANS [Suspect]
     Dosage: 20 MCG/HR, UNK
     Route: 062
     Dates: start: 201211
  4. NORCO [Concomitant]
     Indication: PAIN
     Dosage: 10 MG, PRN
     Route: 048
  5. GABAPENTIN [Concomitant]
     Indication: NEURALGIA
     Dosage: 600 MG, TID
     Route: 048
  6. SYNTHROID [Concomitant]
     Indication: HYPOTHYROIDISM
     Dosage: 0.125 MG, DAILY
     Route: 048
  7. CLONAZEPAM [Concomitant]
     Indication: PANIC ATTACK
     Dosage: 1 MG, TID
     Route: 048
  8. CALCIUM WITH VITAMIN D             /00944201/ [Concomitant]
     Indication: MINERAL SUPPLEMENTATION
     Dosage: 600 MG, BID
     Route: 048

REACTIONS (6)
  - Wrong technique in drug usage process [Unknown]
  - Scab [Not Recovered/Not Resolved]
  - Erythema [Not Recovered/Not Resolved]
  - Drug effect decreased [Not Recovered/Not Resolved]
  - Inadequate analgesia [Not Recovered/Not Resolved]
  - Product adhesion issue [Not Recovered/Not Resolved]
